FAERS Safety Report 18559407 (Version 1)
Quarter: 2020Q4

REPORT INFORMATION
  Report Type: Spontaneous
  Country: FR (occurrence: FR)
  Receive Date: 20201130
  Receipt Date: 20201130
  Transmission Date: 20210114
  Serious: Yes (Other)
  Sender: FDA-Public Use
  Company Number: FR-TEVA-2020-FR-1853520

PATIENT
  Age: 53 Year
  Sex: Male
  Weight: 65 kg

DRUGS (10)
  1. PERINDOPRIL [Suspect]
     Active Substance: PERINDOPRIL
     Indication: HYPERTENSION
     Dosage: UNIT DOSE : 8 MG
     Route: 048
     Dates: start: 20190325
  2. ZYPREXA [Suspect]
     Active Substance: OLANZAPINE
     Indication: MENTAL DISORDER
     Dosage: UNIT DOSE : 20 MG
     Route: 048
     Dates: start: 20150317
  3. MIANSERINE (CHLORHYDRATE DE) [Suspect]
     Active Substance: MIANSERIN HYDROCHLORIDE
     Indication: DEPRESSION
     Dosage: UNIT DOSE : 60 MG
     Route: 048
     Dates: start: 20190514, end: 20200924
  4. VENLAFAXINE [Suspect]
     Active Substance: VENLAFAXINE HYDROCHLORIDE
     Indication: ANXIETY
     Dosage: UNIT DOSE : 37.5 MG
     Route: 048
     Dates: start: 20150317, end: 20200922
  5. DIAZEPAM. [Suspect]
     Active Substance: DIAZEPAM
     Indication: MENTAL DISORDER
     Dosage: UNIT DOSE : 40 MG
     Route: 048
     Dates: start: 20190423
  6. LEPTICUR 10 MG, COMPRIME [Suspect]
     Active Substance: TROPATEPINE HYDROCHLORIDE
     Indication: MENTAL DISORDER
     Dosage: UNIT DOSE : 10 MG
     Route: 048
     Dates: start: 20190423
  7. AMLODIPINE [Suspect]
     Active Substance: AMLODIPINE BESYLATE
     Indication: HYPERTENSION
     Dosage: UNIT DOSE : 10 MG
     Route: 048
     Dates: start: 20190323
  8. PHENERGAN [Suspect]
     Active Substance: PROMETHAZINE HYDROCHLORIDE
     Indication: MENTAL DISORDER
     Dosage: UNIT DOSE : 500 MG
     Route: 042
     Dates: start: 20200924, end: 20201002
  9. LOXAPAC 25 MG, COMPRIME PELLICULE [Suspect]
     Active Substance: LOXAPINE SUCCINATE
     Indication: MENTAL DISORDER
     Dosage: UNIT DOSE : 75 MG
     Route: 048
  10. ZOPICLONE [Concomitant]
     Active Substance: ZOPICLONE
     Indication: SLEEP DISORDER
     Dosage: UNIT DOSE : 7.5 MG
     Route: 048
     Dates: start: 20160712

REACTIONS (2)
  - Vomiting [Recovered/Resolved]
  - Constipation [Recovered/Resolved]

NARRATIVE: CASE EVENT DATE: 202009
